FAERS Safety Report 19399551 (Version 1)
Quarter: 2021Q2

REPORT INFORMATION
  Report Type: Spontaneous
  Country: CN (occurrence: CN)
  Receive Date: 20210610
  Receipt Date: 20210610
  Transmission Date: 20210717
  Serious: Yes (Other)
  Sender: FDA-Public Use
  Company Number: CN-BAXTER-2021BAX015407

PATIENT
  Age: 7 Year
  Sex: Male

DRUGS (2)
  1. 0.9% SODIUM CHLORIDE INJECTION [Suspect]
     Active Substance: SODIUM CHLORIDE
     Indication: MEDICATION DILUTION
     Dosage: SODIUM CHLORIDE INJECTION 250ML + CYCLOPHOSPHAMIDE 1.68 G
     Route: 041
     Dates: start: 20210527, end: 20210527
  2. ENDOXAN [Suspect]
     Active Substance: CYCLOPHOSPHAMIDE
     Indication: ACUTE LYMPHOCYTIC LEUKAEMIA RECURRENT
     Dosage: SODIUM CHLORIDE INJECTION 250 ML + CYCLOPHOSPHAMIDE 1.68G
     Route: 041
     Dates: start: 20210527, end: 20210527

REACTIONS (1)
  - Paraesthesia [Recovering/Resolving]

NARRATIVE: CASE EVENT DATE: 20210527
